FAERS Safety Report 17550166 (Version 1)
Quarter: 2020Q1

REPORT INFORMATION
  Report Type: Spontaneous
  Country: US (occurrence: US)
  Receive Date: 20200317
  Receipt Date: 20200317
  Transmission Date: 20200409
  Serious: Yes (Death)
  Sender: FDA-Public Use
  Company Number: US-PFIZER INC-2018408965

PATIENT
  Age: 40 Year
  Sex: Female

DRUGS (1)
  1. LYRICA [Suspect]
     Active Substance: PREGABALIN
     Indication: BREAST CANCER FEMALE
     Dosage: 150 MG, 2X/DAY (BID)
     Route: 048

REACTIONS (3)
  - Product use in unapproved indication [Unknown]
  - Death [Fatal]
  - Off label use [Unknown]
